FAERS Safety Report 6400813-0 (Version None)
Quarter: 2009Q4

REPORT INFORMATION
  Report Type: 
  Country: None (occurrence: None)
  Receive Date: 20091009
  Receipt Date: 20091001
  Transmission Date: 20100525
  Serious: Yes (Hospitalization)
  Sender: FDA-Public Use
  Company Number: SPV1-2009-01931

PATIENT
  Age: 17 Year
  Sex: Male
  Weight: 88.4 kg

DRUGS (1)
  1. VYVANSE [Suspect]
     Indication: ATTENTION DEFICIT/HYPERACTIVITY DISORDER
     Dosage: 30 MG, 1X/DAY:QD, ORAL
     Route: 048
     Dates: start: 20070101

REACTIONS (4)
  - BLOOD PRESSURE INCREASED [None]
  - LOWER LIMB FRACTURE [None]
  - OFF LABEL USE [None]
  - SOMNOLENCE [None]
